FAERS Safety Report 7755856-1 (Version None)
Quarter: 2011Q3

REPORT INFORMATION
  Report Type: 
  Country: None (occurrence: None)
  Receive Date: 20110916
  Receipt Date: 20110908
  Transmission Date: 20111222
  Serious: Yes (Hospitalization)
  Sender: FDA-Public Use
  Company Number: US-SANOFI-AVENTIS-2011SA060063

PATIENT
  Age: 42 Year
  Sex: Female
  Weight: 59.1 kg

DRUGS (4)
  1. LENALIDOMIDE [Suspect]
     Indication: MULTIPLE MYELOMA
     Route: 048
     Dates: start: 20110712, end: 20110716
  2. VELCADE [Suspect]
     Indication: MULTIPLE MYELOMA
     Route: 040
     Dates: start: 20110712, end: 20110715
  3. LASIX [Suspect]
     Route: 065
  4. DEXAMETHASONE [Suspect]
     Indication: MULTIPLE MYELOMA
     Route: 048
     Dates: start: 20110712, end: 20110716

REACTIONS (3)
  - BLOOD CREATININE INCREASED [None]
  - CHOLECYSTITIS [None]
  - RENAL FAILURE ACUTE [None]
